FAERS Safety Report 19951316 (Version 1)
Quarter: 2021Q4

REPORT INFORMATION
  Report Type: Other
  Country: GR (occurrence: GR)
  Receive Date: 20211014
  Receipt Date: 20211014
  Transmission Date: 20220304
  Serious: Yes (Hospitalization, Other)
  Sender: FDA-Public Use
  Company Number: GR-ROCHE-2929674

PATIENT

DRUGS (1)
  1. MYCOPHENOLATE MOFETIL [Suspect]
     Active Substance: MYCOPHENOLATE MOFETIL
     Indication: Interstitial lung disease
     Route: 065

REACTIONS (8)
  - Lower respiratory tract infection [Unknown]
  - Hepatotoxicity [Unknown]
  - Cytopenia [Unknown]
  - Gastrointestinal disorder [Unknown]
  - Weight decreased [Unknown]
  - Dermatitis [Unknown]
  - Herpes zoster [Unknown]
  - Hyperamylasaemia [Unknown]
